FAERS Safety Report 20305389 (Version 1)
Quarter: 2022Q1

REPORT INFORMATION
  Report Type: Spontaneous
  Country: PL (occurrence: PL)
  Receive Date: 20220106
  Receipt Date: 20220106
  Transmission Date: 20220424
  Serious: Yes (Other)
  Sender: FDA-Public Use
  Company Number: PL-NOVARTISPH-NVSC2021PL102885

PATIENT
  Sex: Female

DRUGS (1)
  1. KYMRIAH [Suspect]
     Active Substance: TISAGENLECLEUCEL
     Indication: Product used for unknown indication
     Dosage: UNK (1,8 X 10 (8)^)
     Route: 065
     Dates: start: 20210409

REACTIONS (3)
  - Cytokine release syndrome [Unknown]
  - Minimal residual disease [Recovered/Resolved]
  - Bone lesion [Unknown]
